FAERS Safety Report 9549553 (Version 1)
Quarter: 2013Q2

REPORT INFORMATION
  Report Type: Spontaneous
  Country: US (occurrence: None)
  Receive Date: 20130627
  Receipt Date: 20130627
  Transmission Date: 20140414
  Serious: No
  Sender: FDA-Public Use
  Company Number: 1000043804

PATIENT
  Age: 69 Year
  Sex: Female

DRUGS (7)
  1. LINZESS (LINACLOTIDE) [Suspect]
     Indication: IRRITABLE BOWEL SYNDROME
     Dates: start: 201303
  2. LINZESS (LINACLOTIDE) [Suspect]
     Indication: CONSTIPATION
     Dates: start: 201303
  3. GABAPENTIN [Concomitant]
  4. LISINOPRIL [Concomitant]
  5. SYNTHROID [Concomitant]
  6. LEXAPRO (ESCITALOPRAM OXALATE) [Concomitant]
  7. LIPITOR (ATORVASTATIN CALCIUM) [Concomitant]

REACTIONS (3)
  - Nervousness [None]
  - Abdominal pain upper [None]
  - Dyspepsia [None]
